FAERS Safety Report 9518697 (Version 4)
Quarter: 2013Q4

REPORT INFORMATION
  Report Type: Report from Study
  Country: US (occurrence: US)
  Receive Date: 20130912
  Receipt Date: 20131126
  Transmission Date: 20140711
  Serious: Yes (Hospitalization)
  Sender: FDA-Public Use
  Company Number: US-JNJFOC-20130901954

PATIENT
  Age: 73 Year
  Sex: Female
  Weight: 88.45 kg

DRUGS (7)
  1. REMICADE [Suspect]
     Indication: RHEUMATOID ARTHRITIS
     Route: 042
     Dates: start: 200604
  2. REMICADE [Suspect]
     Indication: RHEUMATOID ARTHRITIS
     Route: 042
     Dates: start: 20130903
  3. REMICADE [Suspect]
     Indication: RHEUMATOID ARTHRITIS
     Dosage: ABOUT 5 YEARS PRIOR TO THE DATE OF THIS REPORT
     Route: 042
  4. REMICADE [Suspect]
     Indication: RHEUMATOID ARTHRITIS
     Route: 042
     Dates: start: 20130705
  5. VICODIN [Concomitant]
     Indication: PAIN
     Route: 048
     Dates: start: 2011
  6. PREDNISONE [Concomitant]
     Indication: RHEUMATOID ARTHRITIS
     Dosage: 2-3 TIMES DAILY
     Route: 048
  7. FOLIC ACID [Concomitant]
     Indication: VITAMIN SUPPLEMENTATION
     Route: 048
     Dates: start: 2010

REACTIONS (6)
  - Lower limb fracture [Unknown]
  - Clavicle fracture [Recovered/Resolved]
  - Fall [Recovered/Resolved]
  - Inguinal hernia, obstructive [Recovered/Resolved]
  - Drug ineffective [Recovered/Resolved]
  - Urinary tract infection [Not Recovered/Not Resolved]
